FAERS Safety Report 6108979-7 (Version None)
Quarter: 2009Q1

REPORT INFORMATION
  Report Type: 
  Country: None (occurrence: None)
  Receive Date: 20090306
  Receipt Date: 20090224
  Transmission Date: 20090719
  Serious: Yes (Other)
  Sender: FDA-Public Use
  Company Number: GXKR2009US02339

PATIENT
  Age: 67 Year
  Sex: Male

DRUGS (5)
  1. SULFAMETHOXAZOLE AND TRIMETHOPRIM [Suspect]
     Indication: EMPYEMA
  2. CIPROFLOXACIN [Concomitant]
  3. CEFEPMIE (CEFEPIME) [Concomitant]
  4. TIGECYCLINE (TIGECYCLINE) [Concomitant]
  5. MOXIFLOXACIN HCL [Concomitant]

REACTIONS (2)
  - ACUTE FEBRILE NEUTROPHILIC DERMATOSIS [None]
  - ARTHRALGIA [None]
